FAERS Safety Report 9908283 (Version 2)
Quarter: 2014Q2

REPORT INFORMATION
  Report Type: Spontaneous
  Country: US (occurrence: US)
  Receive Date: 20140219
  Receipt Date: 20140411
  Transmission Date: 20141212
  Serious: No
  Sender: FDA-Public Use
  Company Number: US-009507513-1402USA006806

PATIENT
  Sex: 0
  Weight: 47.17 kg

DRUGS (2)
  1. NEXPLANON [Suspect]
     Dosage: UNK, 68 MG ONE STANDARD PACKAGE OF PF APPLI OF ONE
     Route: 059
     Dates: start: 20140211
  2. NEXPLANON [Suspect]
     Dosage: UNK, 68 MG ONE STANDARD PACKAGE OF PF APPLI OF ONE
     Route: 059
     Dates: start: 20140211

REACTIONS (2)
  - Device difficult to use [Recovered/Resolved]
  - No adverse event [Unknown]
